FAERS Safety Report 8904266 (Version 3)
Quarter: 2013Q1

REPORT INFORMATION
  Report Type: Report from Study
  Country: US (occurrence: US)
  Receive Date: 20121112
  Receipt Date: 20130329
  Transmission Date: 20140127
  Serious: Yes (Hospitalization)
  Sender: FDA-Public Use
  Company Number: US-GLAXOSMITHKLINE-A0989590B

PATIENT
  Age: 40 Year
  Sex: Male

DRUGS (24)
  1. PAZOPANIB [Suspect]
     Indication: METASTATIC RENAL CELL CARCINOMA
     Route: 048
     Dates: start: 20120717
  2. INVESTIGATIONAL STUDY DRUG [Suspect]
     Indication: METASTATIC RENAL CELL CARCINOMA
     Route: 042
     Dates: start: 20120221
  3. TESSALON PEARLS [Concomitant]
  4. DEXTROSE + SODIUM CHLORIDE [Concomitant]
  5. CEFTRIAXONE [Concomitant]
  6. HYDROMORPHONE [Concomitant]
     Dates: start: 201204
  7. HYDROCORTISONE CREAM [Concomitant]
     Dates: start: 201204
  8. SYNTHROID [Concomitant]
     Dates: start: 201107
  9. TAMSULOSIN [Concomitant]
     Dates: start: 2011
  10. CYMBALTA [Concomitant]
     Dates: start: 20110831, end: 20120606
  11. ZOFRAN [Concomitant]
     Dates: start: 20110831
  12. PHENERGAN [Concomitant]
     Dates: start: 20110831, end: 20120606
  13. PROTONIX [Concomitant]
     Dates: start: 20110914
  14. MIRALAX [Concomitant]
     Dates: start: 20120225
  15. SENOKOT [Concomitant]
     Dates: start: 20120301
  16. OXYCONTIN [Concomitant]
     Dates: start: 20120303, end: 20120331
  17. IMODIUM [Concomitant]
     Dates: start: 20120309
  18. IBUPROFEN [Concomitant]
     Dates: start: 20120313
  19. ATIVAN [Concomitant]
     Dates: start: 20120320
  20. LISINOPRIL [Concomitant]
     Dates: start: 20120403
  21. LEVSIN [Concomitant]
     Dates: start: 20120408
  22. DIPHENHYDRAMINE [Concomitant]
     Dates: start: 20120419
  23. DIAZEPAM [Concomitant]
     Dates: start: 20120606
  24. ANTIBIOTIC [Concomitant]

REACTIONS (1)
  - Pyrexia [Recovered/Resolved]
